FAERS Safety Report 12100683 (Version 2)
Quarter: 2016Q1

REPORT INFORMATION
  Report Type: Spontaneous
  Country: US (occurrence: US)
  Receive Date: 20160222
  Receipt Date: 20160302
  Transmission Date: 20160526
  Serious: No
  Sender: FDA-Public Use
  Company Number: US-GLAXOSMITHKLINE-US2016024143

PATIENT
  Age: 62 Year
  Sex: Male

DRUGS (8)
  1. ADVAIR DISKUS [Suspect]
     Active Substance: FLUTICASONE PROPIONATE\SALMETEROL XINAFOATE
     Indication: CHRONIC OBSTRUCTIVE PULMONARY DISEASE
     Dosage: UNK
     Route: 055
     Dates: start: 2010
  2. OXYGEN. [Concomitant]
     Active Substance: OXYGEN
  3. ACCOLATE [Concomitant]
     Active Substance: ZAFIRLUKAST
  4. NASONEX [Concomitant]
     Active Substance: MOMETASONE FUROATE
  5. INCRUSE ELLIPTA [Suspect]
     Active Substance: UMECLIDINIUM BROMIDE
     Indication: CHRONIC OBSTRUCTIVE PULMONARY DISEASE
     Dosage: UNK
     Route: 055
     Dates: start: 20160218, end: 20160225
  6. FLUTICASONE PROPIONATE. [Concomitant]
     Active Substance: FLUTICASONE PROPIONATE
  7. CLONAZEPAM. [Concomitant]
     Active Substance: CLONAZEPAM
  8. SEROQUEL [Concomitant]
     Active Substance: QUETIAPINE FUMARATE

REACTIONS (8)
  - Renal cyst [Unknown]
  - Headache [Not Recovered/Not Resolved]
  - Dysphonia [Not Recovered/Not Resolved]
  - Vision blurred [Not Recovered/Not Resolved]
  - Pain [Not Recovered/Not Resolved]
  - Dysuria [Not Recovered/Not Resolved]
  - Nausea [Not Recovered/Not Resolved]
  - Constipation [Not Recovered/Not Resolved]

NARRATIVE: CASE EVENT DATE: 2010
